FAERS Safety Report 5398358-2 (Version None)
Quarter: 2007Q3

REPORT INFORMATION
  Report Type: 
  Country: None (occurrence: None)
  Receive Date: 20070726
  Receipt Date: 20070522
  Transmission Date: 20080115
  Serious: No
  Sender: FDA-Public Use
  Company Number: US-AMGEN-KDL226368

PATIENT
  Sex: Male

DRUGS (2)
  1. PROCRIT [Suspect]
     Indication: RENAL FAILURE CHRONIC
     Dates: start: 20041013, end: 20050330
  2. ARANESP [Concomitant]

REACTIONS (3)
  - DRUG INTOLERANCE [None]
  - HYPERTENSION [None]
  - PSYCHOMOTOR HYPERACTIVITY [None]
